FAERS Safety Report 15671692 (Version 1)
Quarter: 2018Q4

REPORT INFORMATION
  Report Type: Report from Study
  Country: US (occurrence: US)
  Receive Date: 20181129
  Receipt Date: 20181129
  Transmission Date: 20190205
  Serious: No
  Sender: FDA-Public Use
  Company Number: US-TESARO-US-2018TSO04623

PATIENT
  Sex: Female

DRUGS (1)
  1. ZEJULA [Suspect]
     Active Substance: NIRAPARIB
     Indication: OVARIAN CANCER
     Dosage: 200 MG, QD
     Route: 048
     Dates: start: 20180910

REACTIONS (8)
  - Asthenia [Recovering/Resolving]
  - Intentional underdose [Unknown]
  - Dysphonia [Unknown]
  - Blood pressure increased [Not Recovered/Not Resolved]
  - Fatigue [Recovering/Resolving]
  - Renal impairment [Unknown]
  - Hypersensitivity [Unknown]
  - Decreased appetite [Recovered/Resolved]

NARRATIVE: CASE EVENT DATE: 2018
